FAERS Safety Report 13882267 (Version 4)
Quarter: 2018Q1

REPORT INFORMATION
  Report Type: Report from Study
  Country: US (occurrence: US)
  Receive Date: 20170818
  Receipt Date: 20180305
  Transmission Date: 20180508
  Serious: Yes (Hospitalization, Other)
  Sender: FDA-Public Use
  Company Number: US-SA-2017SA148601

PATIENT
  Age: 46 Year
  Sex: Male
  Weight: 98.4 kg

DRUGS (35)
  1. LEMTRADA [Suspect]
     Active Substance: ALEMTUZUMAB
     Indication: MULTIPLE SCLEROSIS
     Route: 041
     Dates: start: 20170811, end: 20170811
  2. TRAZODONE [Concomitant]
     Active Substance: TRAZODONE HYDROCHLORIDE
     Route: 048
  3. ACYCLOVIR. [Concomitant]
     Active Substance: ACYCLOVIR
     Indication: ANTIVIRAL PROPHYLAXIS
     Route: 048
  4. DIPHENHYDRAMINE. [Concomitant]
     Active Substance: DIPHENHYDRAMINE
     Indication: SLEEP DISORDER
     Dosage: DOSE: 25-50 MG?FREQUENCY: EVERY 8 HOURS AS NEEDED
     Route: 048
  5. SODIUM CHLORIDE. [Concomitant]
     Active Substance: SODIUM CHLORIDE
     Indication: DEHYDRATION
     Dosage: INFUSE OVER 2 HOURS DAILY
     Route: 065
     Dates: start: 20170807, end: 20170807
  6. POLYETHYLENE GLYCOL [Concomitant]
     Active Substance: POLYETHYLENE GLYCOLS
     Route: 048
  7. VESICARE [Concomitant]
     Active Substance: SOLIFENACIN SUCCINATE
     Route: 048
     Dates: start: 20170303
  8. LEMTRADA [Suspect]
     Active Substance: ALEMTUZUMAB
     Indication: MULTIPLE SCLEROSIS
     Route: 041
     Dates: start: 20170807, end: 20170807
  9. LEMTRADA [Suspect]
     Active Substance: ALEMTUZUMAB
     Indication: MULTIPLE SCLEROSIS
     Route: 041
     Dates: start: 20170810, end: 20170810
  10. WARFARIN [Concomitant]
     Active Substance: WARFARIN
     Indication: PULMONARY EMBOLISM
     Route: 048
  11. ACETAMINOPHEN. [Concomitant]
     Active Substance: ACETAMINOPHEN
     Indication: PAIN
     Route: 048
  12. ZOFRAN [Concomitant]
     Active Substance: ONDANSETRON HYDROCHLORIDE
     Indication: NAUSEA
     Dosage: EVERY 8 HOURS
     Route: 048
  13. METHYLPREDNISOLONE. [Concomitant]
     Active Substance: METHYLPREDNISOLONE
     Indication: PREMEDICATION
     Dosage: ROUTE: INTRAVENOUS PIGGYBACK (IVPB)
     Dates: start: 20170810, end: 20170811
  14. SERTRALINE [Concomitant]
     Active Substance: SERTRALINE HYDROCHLORIDE
     Dosage: AT BEDTIME
     Route: 048
  15. ACETAMINOPHEN. [Concomitant]
     Active Substance: ACETAMINOPHEN
     Indication: HEADACHE
     Dosage: FREQUENCY:: Q6H
     Route: 048
  16. SOLU-MEDROL [Suspect]
     Active Substance: METHYLPREDNISOLONE SODIUM SUCCINATE
     Indication: HEART RATE INCREASED
     Route: 065
  17. ZYRTEC [Concomitant]
     Active Substance: CETIRIZINE HYDROCHLORIDE
     Indication: PROPHYLAXIS
     Route: 048
  18. TROSPIUM [Concomitant]
     Active Substance: TROSPIUM
     Route: 048
  19. FAMOTIDINE. [Concomitant]
     Active Substance: FAMOTIDINE
     Route: 048
  20. ZOFRAN [Concomitant]
     Active Substance: ONDANSETRON HYDROCHLORIDE
     Indication: NAUSEA
     Dosage: 4MG/2 ML?ROUTE: IV PUSH
  21. WARFARIN [Concomitant]
     Active Substance: WARFARIN
     Indication: DEEP VEIN THROMBOSIS
     Route: 048
  22. PANTOPRAZOLE [Concomitant]
     Active Substance: PANTOPRAZOLE
     Route: 048
  23. SOLIFENACIN [Concomitant]
     Active Substance: SOLIFENACIN
     Route: 048
  24. ACETAMINOPHEN. [Concomitant]
     Active Substance: ACETAMINOPHEN
     Indication: PAIN
     Dosage: FREQUENCY:: Q6H
     Route: 048
  25. ACETAMINOPHEN. [Concomitant]
     Active Substance: ACETAMINOPHEN
     Indication: HEADACHE
     Route: 048
  26. ZOFRAN [Concomitant]
     Active Substance: ONDANSETRON HYDROCHLORIDE
     Indication: VOMITING
     Dosage: EVERY 8 HOURS
     Route: 048
  27. DIPHENHYDRAMINE. [Concomitant]
     Active Substance: DIPHENHYDRAMINE
     Indication: RASH
     Dosage: DOSE: 25-50 MG?FREQUENCY: EVERY 8 HOURS AS NEEDED
     Route: 048
  28. METHYLPREDNISOLONE. [Concomitant]
     Active Substance: METHYLPREDNISOLONE
     Indication: PREMEDICATION
     Dosage: ROUTE: INTRAVENOUS PIGGYBACK (IVPB)
     Dates: start: 20170807, end: 20170807
  29. GABAPENTIN. [Concomitant]
     Active Substance: GABAPENTIN
     Route: 048
  30. ACETAMINOPHEN. [Concomitant]
     Active Substance: ACETAMINOPHEN
     Indication: PYREXIA
     Dosage: FREQUENCY:: Q6H
     Route: 048
  31. ACETAMINOPHEN. [Concomitant]
     Active Substance: ACETAMINOPHEN
     Indication: PYREXIA
     Route: 048
  32. ZOFRAN [Concomitant]
     Active Substance: ONDANSETRON HYDROCHLORIDE
     Indication: VOMITING
     Dosage: 4MG/2 ML?ROUTE: IV PUSH
  33. RANITIDINE. [Concomitant]
     Active Substance: RANITIDINE
     Indication: PROPHYLAXIS
     Route: 048
  34. DIPHENHYDRAMINE. [Concomitant]
     Active Substance: DIPHENHYDRAMINE
     Indication: PRURITUS
     Dosage: DOSE: 25-50 MG?FREQUENCY: EVERY 8 HOURS AS NEEDED
     Route: 048
  35. SODIUM CHLORIDE. [Concomitant]
     Active Substance: SODIUM CHLORIDE
     Indication: DEHYDRATION
     Dosage: INFUSE OVER 2 HOURS DAILY
     Route: 065
     Dates: start: 20170810, end: 20170811

REACTIONS (17)
  - Heart rate decreased [Recovered/Resolved]
  - Colloid brain cyst [Unknown]
  - Movement disorder [Unknown]
  - Dysuria [Unknown]
  - Blood glucose increased [Unknown]
  - Confusional state [Not Recovered/Not Resolved]
  - Asthenia [Unknown]
  - Memory impairment [Not Recovered/Not Resolved]
  - International normalised ratio increased [Unknown]
  - Platelet count decreased [Unknown]
  - Cerebral ventricle dilatation [Unknown]
  - Prothrombin time ratio increased [Unknown]
  - Multiple sclerosis relapse [Recovering/Resolving]
  - Mental disorder [Unknown]
  - Heart rate increased [Recovered/Resolved]
  - Blood magnesium decreased [Unknown]
  - Nuclear magnetic resonance imaging abnormal [Unknown]

NARRATIVE: CASE EVENT DATE: 2017
